FAERS Safety Report 7010440-2 (Version None)
Quarter: 2010Q3

REPORT INFORMATION
  Report Type: 
  Country: None (occurrence: None)
  Receive Date: 20100923
  Receipt Date: 20100913
  Transmission Date: 20110219
  Serious: Yes (Hospitalization)
  Sender: FDA-Public Use
  Company Number: TW-PFIZER INC-2010118600

PATIENT
  Age: 51 Year
  Sex: Male

DRUGS (6)
  1. SERTRALINE HYDROCHLORIDE [Suspect]
     Indication: DEPRESSION
     Dosage: 50 MG, UNK
  2. LORAZEPAM [Suspect]
     Indication: DEPRESSION
     Dosage: 0.5 MG, HORA SOMNI
  3. FOSINOPRIL [Suspect]
     Indication: HYPERTENSION
     Dosage: 5 MG, UNK
  4. FOSINOPRIL [Suspect]
     Indication: CORONARY ARTERY DISEASE
  5. ACETYLSALICYLIC ACID [Suspect]
     Indication: HYPERTENSION
     Dosage: 100 MG, UNK
  6. ACETYLSALICYLIC ACID [Suspect]
     Indication: CORONARY ARTERY DISEASE

REACTIONS (2)
  - MANIA [None]
  - SICK SINUS SYNDROME [None]
